FAERS Safety Report 24281334 (Version 1)
Quarter: 2024Q3

REPORT INFORMATION
  Report Type: Report from Study
  Country: US (occurrence: US)
  Receive Date: 20240904
  Receipt Date: 20240904
  Transmission Date: 20241017
  Serious: Yes (Hospitalization)
  Sender: TAKEDA
  Company Number: US-TAKEDA-US201804187

PATIENT
  Age: 42 Year
  Sex: Female

DRUGS (2)
  1. HUMAN IMMUNOGLOBULIN G [Suspect]
     Active Substance: HUMAN IMMUNOGLOBULIN G
     Indication: Hypogammaglobulinaemia
     Dosage: UNK
     Route: 042
  2. HUMAN IMMUNOGLOBULIN G [Suspect]
     Active Substance: HUMAN IMMUNOGLOBULIN G
     Indication: Primary immunodeficiency syndrome
     Dosage: UNK, Q3WEEKS
     Route: 042

REACTIONS (7)
  - CD4 lymphocytes decreased [Unknown]
  - Infection [Unknown]
  - Natural killer cell count decreased [Unknown]
  - Immunoglobulins abnormal [Unknown]
  - COVID-19 [Recovered/Resolved]
  - Vein disorder [Unknown]
  - Illness [Unknown]

NARRATIVE: CASE EVENT DATE: 20220601
